FAERS Safety Report 8596771-3 (Version None)
Quarter: 2012Q3

REPORT INFORMATION
  Report Type: 
  Country: None (occurrence: None)
  Receive Date: 20120815
  Receipt Date: 20120809
  Transmission Date: 20120928
  Serious: No
  Sender: FDA-Public Use
  Company Number: US-ASTRAZENECA-2012SE56702

PATIENT
  Age: 51 Year
  Sex: Male

DRUGS (2)
  1. ZANTAC [Concomitant]
  2. NEXIUM [Suspect]
     Route: 048

REACTIONS (3)
  - CHEST PAIN [None]
  - PAIN [None]
  - DRUG DOSE OMISSION [None]
